FAERS Safety Report 21325594 (Version 1)
Quarter: 2022Q3

REPORT INFORMATION
  Report Type: Spontaneous
  Country: US (occurrence: None)
  Receive Date: 20220912
  Receipt Date: 20220912
  Transmission Date: 20221027
  Serious: No
  Sender: FDA-Public Use
  Company Number: None

PATIENT
  Age: 62 Year
  Sex: Female

DRUGS (1)
  1. DIMETHYL FUMARATE [Suspect]
     Active Substance: DIMETHYL FUMARATE
     Indication: Multiple sclerosis
     Dosage: 240MG TWICE DAILY ORAL?
     Route: 048
     Dates: start: 202011

REACTIONS (6)
  - Diplopia [None]
  - Gait disturbance [None]
  - Asthenia [None]
  - Blood potassium increased [None]
  - Blood sodium increased [None]
  - Multiple sclerosis relapse [None]

NARRATIVE: CASE EVENT DATE: 20220826
